FAERS Safety Report 15338646 (Version 1)
Quarter: 2018Q3

REPORT INFORMATION
  Report Type: Spontaneous
  Country: US (occurrence: US)
  Receive Date: 20180831
  Receipt Date: 20180831
  Transmission Date: 20181010
  Serious: No
  Sender: FDA-Public Use
  Company Number: US-INTERCEPT-PMOCA2018000971

PATIENT

DRUGS (1)
  1. OCALIVA [Suspect]
     Active Substance: OBETICHOLIC ACID
     Indication: PRIMARY BILIARY CHOLANGITIS
     Dosage: 5 MG, QD
     Route: 048
     Dates: start: 20180517

REACTIONS (6)
  - Sunburn [Unknown]
  - Nausea [Unknown]
  - Eczema [Unknown]
  - Pain [Unknown]
  - Rash macular [Unknown]
  - Chest pain [Unknown]

NARRATIVE: CASE EVENT DATE: 2018
